FAERS Safety Report 17002945 (Version 1)
Quarter: 2019Q4

REPORT INFORMATION
  Report Type: Spontaneous
  Country: ES (occurrence: ES)
  Receive Date: 20191107
  Receipt Date: 20191107
  Transmission Date: 20200122
  Serious: Yes (Life-Threatening, Other)
  Sender: FDA-Public Use
  Company Number: ES-TEVA-2019-ES-1132240

PATIENT
  Age: 58 Year
  Sex: Male

DRUGS (7)
  1. SALICYLIC ACID. [Suspect]
     Active Substance: SALICYLIC ACID
     Indication: PREMEDICATION
     Route: 065
     Dates: start: 2018
  2. MONTELUKAST [Suspect]
     Active Substance: MONTELUKAST SODIUM
     Indication: PREMEDICATION
     Route: 065
     Dates: start: 2018
  3. OMALIZUMAB. [Suspect]
     Active Substance: OMALIZUMAB
     Indication: PREMEDICATION
     Route: 065
     Dates: start: 2018
  4. RANITIDINE. [Suspect]
     Active Substance: RANITIDINE
     Indication: PREMEDICATION
     Route: 065
     Dates: start: 2018
  5. OXALIPLATIN. [Suspect]
     Active Substance: OXALIPLATIN
     Indication: RECTAL ADENOCARCINOMA
     Dosage: RECEIVED 7 CHEMOTHERAPY CYCLES (OXALIPLATIN- CAPECITABINE), INFUSION
     Route: 065
     Dates: end: 2015
  6. DEXCHLORPHENIRAMINE [Suspect]
     Active Substance: DEXCHLORPHENIRAMINE
     Indication: PREMEDICATION
     Route: 065
     Dates: start: 2018
  7. CAPECITABINE. [Concomitant]
     Active Substance: CAPECITABINE
     Indication: RECTAL ADENOCARCINOMA
     Dosage: RECEIVED 7 CHEMOTHERAPY CYCLES (OXALIPLATIN- CAPECITABINE).
     Route: 065
     Dates: end: 2015

REACTIONS (7)
  - Dyspnoea [Unknown]
  - Pruritus [Unknown]
  - Bradycardia [Unknown]
  - Hypersensitivity [Unknown]
  - Oxygen saturation decreased [Unknown]
  - Depressed level of consciousness [Unknown]
  - Erythema [Unknown]

NARRATIVE: CASE EVENT DATE: 2015
